FAERS Safety Report 19970935 (Version 6)
Quarter: 2022Q1

REPORT INFORMATION
  Report Type: Report from Study
  Country: US (occurrence: US)
  Receive Date: 20211020
  Receipt Date: 20220317
  Transmission Date: 20220424
  Serious: Yes (Hospitalization, Other)
  Sender: FDA-Public Use
  Company Number: US-NOVARTISPH-NVSC2021US238347

PATIENT
  Age: 91 Year
  Sex: Male

DRUGS (1)
  1. ENTRESTO [Suspect]
     Active Substance: SACUBITRIL\VALSARTAN
     Indication: Product used for unknown indication
     Dosage: 100 MG, (49/51 MG), BID
     Route: 065
     Dates: start: 20210614

REACTIONS (8)
  - Pneumonia [Recovering/Resolving]
  - Bronchitis [Recovering/Resolving]
  - Cardiac failure chronic [Recovered/Resolved]
  - Weight decreased [Recovered/Resolved]
  - Wound [Unknown]
  - Weight decreased [Recovered/Resolved]
  - Spinal disorder [Recovered/Resolved]
  - Pain in extremity [Recovered/Resolved]

NARRATIVE: CASE EVENT DATE: 20210915
